FAERS Safety Report 14598258 (Version 1)
Quarter: 2018Q1

REPORT INFORMATION
  Report Type: Spontaneous
  Country: US (occurrence: US)
  Receive Date: 20180305
  Receipt Date: 20180305
  Transmission Date: 20180509
  Serious: Yes (Other)
  Sender: FDA-Public Use
  Company Number: US-GLAXOSMITHKLINE-US2018033004

PATIENT
  Sex: Female

DRUGS (1)
  1. EX-LAX MAXIMUM STRENGTH STIMULANT LAXATIVE [Suspect]
     Active Substance: SENNOSIDES
     Indication: CONSTIPATION
     Dosage: 4 DF, UNK, TOOK 2 PILL FRIDAY MORNING 2 PILLS SATURDAY
     Dates: start: 20180223, end: 20180224

REACTIONS (4)
  - Haematochezia [Recovering/Resolving]
  - Drug ineffective [Unknown]
  - Escherichia infection [Unknown]
  - Abdominal pain [Recovering/Resolving]

NARRATIVE: CASE EVENT DATE: 20180223
